FAERS Safety Report 25888945 (Version 1)
Quarter: 2025Q4

REPORT INFORMATION
  Report Type: Spontaneous
  Country: US (occurrence: US)
  Receive Date: 20251007
  Receipt Date: 20251007
  Transmission Date: 20260118
  Serious: No
  Sender: DR REDDYS
  Company Number: US-DRL-USA-USA/2025/09/014730

PATIENT
  Age: 90 Year
  Sex: Male

DRUGS (1)
  1. CLONIDINE [Suspect]
     Active Substance: CLONIDINE
     Indication: Product used for unknown indication
     Dosage: TRANSDERMAL SYSTEM USP,MAYNE, UNSPECIFIED
     Route: 062

REACTIONS (2)
  - Rash erythematous [Unknown]
  - Blister [Unknown]
